FAERS Safety Report 19453702 (Version 12)
Quarter: 2024Q4

REPORT INFORMATION
  Report Type: Spontaneous
  Country: US (occurrence: US)
  Receive Date: 20210623
  Receipt Date: 20241121
  Transmission Date: 20250115
  Serious: Yes (Hospitalization, Other)
  Sender: PFIZER
  Company Number: US-PFIZER INC-2021678799

PATIENT
  Age: 73 Year
  Sex: Male
  Weight: 88.435 kg

DRUGS (4)
  1. XELJANZ XR [Suspect]
     Active Substance: TOFACITINIB CITRATE
     Indication: Arthritis
     Dosage: 11 MG, 1X/DAY
     Dates: start: 20200901
  2. XELJANZ XR [Suspect]
     Active Substance: TOFACITINIB CITRATE
     Dosage: 11 MG
     Dates: start: 20200910
  3. PREDNISONE [Concomitant]
     Active Substance: PREDNISONE
     Dosage: 5 MG, DAILY
  4. PREDNISONE [Concomitant]
     Active Substance: PREDNISONE
     Dosage: 20 MG, DAILY

REACTIONS (18)
  - Spinal operation [Unknown]
  - Haematochezia [Unknown]
  - Skin cancer [Unknown]
  - Malignant melanoma [Unknown]
  - Illness [Unknown]
  - Pyrexia [Unknown]
  - Viral infection [Unknown]
  - Feeling abnormal [Unknown]
  - Asthenia [Unknown]
  - Constipation [Unknown]
  - Haemorrhoids [Unknown]
  - Fungal foot infection [Unknown]
  - Skin exfoliation [Unknown]
  - Herpes zoster [Not Recovered/Not Resolved]
  - COVID-19 [Recovered/Resolved]
  - Multiple allergies [Unknown]
  - Visual impairment [Recovering/Resolving]
  - Product dispensing error [Unknown]

NARRATIVE: CASE EVENT DATE: 20210607
